FAERS Safety Report 12254278 (Version 1)
Quarter: 2016Q2

REPORT INFORMATION
  Report Type: Report from Study
  Country: US (occurrence: US)
  Receive Date: 20160411
  Receipt Date: 20160411
  Transmission Date: 20160815
  Serious: No
  Sender: FDA-Public Use
  Company Number: US-ABBVIE-16P-163-1583772-00

PATIENT
  Age: 48 Year
  Sex: Female

DRUGS (1)
  1. DUOPA [Suspect]
     Active Substance: CARBIDOPA\LEVODOPA
     Indication: PARKINSON^S DISEASE
     Route: 050
     Dates: start: 20140514

REACTIONS (4)
  - Stoma site reaction [Not Recovered/Not Resolved]
  - Stoma site erythema [Recovered/Resolved]
  - Stoma site hypergranulation [Not Recovered/Not Resolved]
  - Stoma site oedema [Not Recovered/Not Resolved]

NARRATIVE: CASE EVENT DATE: 201603
